FAERS Safety Report 10087964 (Version 2)
Quarter: 2014Q2

REPORT INFORMATION
  Report Type: Report from Study
  Country: JP (occurrence: JP)
  Receive Date: 20140419
  Receipt Date: 20140620
  Transmission Date: 20141212
  Serious: Yes (Hospitalization)
  Sender: FDA-Public Use
  Company Number: JP-009507513-1404JPN008971

PATIENT
  Age: 1 Year
  Sex: Male

DRUGS (6)
  1. DIAZOXIDE [Suspect]
     Indication: HYPOGLYCAEMIA
     Dosage: 11.7 MG, TID
     Route: 048
     Dates: start: 20130312, end: 20130316
  2. DIAZOXIDE [Suspect]
     Dosage: 20 MG, TID
     Route: 048
     Dates: start: 20130317, end: 20130319
  3. DIAZOXIDE [Suspect]
     Dosage: 26.7 MG, TID
     Route: 048
     Dates: start: 20130319, end: 20130322
  4. DIAZOXIDE [Suspect]
     Dosage: 30 MG, TID
     Route: 048
     Dates: start: 20130322, end: 20130514
  5. DIAZOXIDE [Suspect]
     Dosage: 23.3 MG, TID
     Route: 048
     Dates: start: 20130514, end: 20131204
  6. DIAZOXIDE [Suspect]
     Dosage: 30 MG, TID
     Route: 048
     Dates: start: 20131204

REACTIONS (2)
  - Febrile convulsion [Recovering/Resolving]
  - Nasopharyngitis [Recovering/Resolving]
